FAERS Safety Report 8580326-0 (Version None)
Quarter: 2012Q3

REPORT INFORMATION
  Report Type: 
  Country: None (occurrence: None)
  Receive Date: 20120808
  Receipt Date: 20120803
  Transmission Date: 20120928
  Serious: Yes (Other)
  Sender: FDA-Public Use
  Company Number: DE-ROXANE LABORATORIES, INC.-2012-RO-01640RO

PATIENT
  Age: 31 Year
  Sex: Female

DRUGS (2)
  1. CITALOPRAM HYDROBROMIDE [Suspect]
     Indication: PANIC DISORDER
     Dosage: 10 MG
  2. CITALOPRAM HYDROBROMIDE [Suspect]
     Dosage: 20 MG

REACTIONS (2)
  - THINKING ABNORMAL [None]
  - MAJOR DEPRESSION [None]
